FAERS Safety Report 7042157-2 (Version None)
Quarter: 2010Q4

REPORT INFORMATION
  Report Type: 
  Country: None (occurrence: None)
  Receive Date: 20101013
  Receipt Date: 20100712
  Transmission Date: 20110411
  Serious: No
  Sender: FDA-Public Use
  Company Number: US-ASTRAZENECA-2010SE32348

PATIENT
  Age: 80 Year
  Sex: Male
  Weight: 72.6 kg

DRUGS (4)
  1. SYMBICORT [Suspect]
     Indication: ASTHMA
     Dosage: 160/4.5 MCG 2 PUFFS MCG
     Route: 055
     Dates: start: 20080101, end: 20100101
  2. SYMBICORT [Suspect]
     Dosage: 80/4.5 MCG 2 PUFFS
     Route: 055
     Dates: start: 20100101
  3. SPIRIVA [Concomitant]
  4. ALBUTEROL [Concomitant]

REACTIONS (2)
  - DRUG INEFFECTIVE [None]
  - WEIGHT DECREASED [None]
